FAERS Safety Report 19064845 (Version 2)
Quarter: 2021Q2

REPORT INFORMATION
  Report Type: Spontaneous
  Country: DE (occurrence: DE)
  Receive Date: 20210326
  Receipt Date: 20210421
  Transmission Date: 20210717
  Serious: Yes (Other)
  Sender: FDA-Public Use
  Company Number: DE-COLLEGIUM PHARMACEUTICAL, INC.-2021CGM00300

PATIENT
  Age: 59 Year
  Sex: Female
  Weight: 66 kg

DRUGS (15)
  1. SATIVEX [Concomitant]
     Active Substance: NABIXIMOLS
     Dosage: UNK
     Dates: start: 201209
  2. AMITRIPTYLIN [Concomitant]
     Active Substance: AMITRIPTYLINE
     Dosage: UNK
     Dates: start: 201209
  3. PANTOPRAZOLE [PANTOPRAZOLE] [Concomitant]
     Active Substance: PANTOPRAZOLE
     Dosage: UNK
     Dates: start: 201209
  4. TAPENTADOL [Suspect]
     Active Substance: TAPENTADOL
     Indication: PAIN
     Dosage: 400 MG, 1X/DAY
     Route: 048
     Dates: start: 201209
  5. L?THYROXIN [LEVOTHYROXINE] [Concomitant]
     Active Substance: LEVOTHYROXINE SODIUM
     Dosage: UNK
     Dates: start: 201209
  6. SALICYLATES NOS [Suspect]
     Active Substance: UNSPECIFIED INGREDIENT
     Indication: PRODUCT USED FOR UNKNOWN INDICATION
     Dosage: UNK
  7. ALFUZOSIN [Concomitant]
     Active Substance: ALFUZOSIN
  8. MOVICOL [Concomitant]
     Active Substance: POLYETHYLENE GLYCOL 3350\POTASSIUM CHLORIDE\SODIUM BICARBONATE\SODIUM CHLORIDE
  9. AMBROXOL [Concomitant]
     Active Substance: AMBROXOL
     Dosage: UNK
     Dates: start: 201209
  10. CURCUMIN LOGES [Suspect]
     Active Substance: CURCUMIN\DIETARY SUPPLEMENT
     Indication: ABDOMINAL PAIN
     Dosage: 1 DF, 2X/DAY
     Dates: end: 20200505
  11. PREGABALIN. [Concomitant]
     Active Substance: PREGABALIN
     Dosage: UNK
     Dates: start: 201209
  12. AMBROXOL RETARD [Concomitant]
     Dosage: UNK
     Dates: start: 201209
  13. QUTENZA [Suspect]
     Active Substance: CAPSAICIN
     Indication: NEURALGIA
     Dosage: 1 DF, QUARTERLY
     Route: 003
     Dates: start: 201506, end: 20200723
  14. NORSPAN [Concomitant]
     Active Substance: BUPRENORPHINE
     Dosage: UNK
     Dates: start: 201209
  15. MOVENTIG [Concomitant]
     Active Substance: NALOXEGOL OXALATE
     Dosage: UNK
     Dates: start: 201209

REACTIONS (20)
  - Angioedema [Not Recovered/Not Resolved]
  - Hypersensitivity [Recovering/Resolving]
  - Hypotension [Unknown]
  - Flushing [Unknown]
  - Large intestinal ulcer [Not Recovered/Not Resolved]
  - Gastrooesophageal reflux disease [Unknown]
  - Anaphylactic reaction [Not Recovered/Not Resolved]
  - Abdominal discomfort [Recovered/Resolved]
  - Abdominal pain lower [Unknown]
  - Presyncope [Unknown]
  - Drug interaction [Unknown]
  - Burning sensation [Recovered/Resolved]
  - Drug interaction [Not Recovered/Not Resolved]
  - Histamine intolerance [Not Recovered/Not Resolved]
  - Loss of consciousness [Unknown]
  - Mast cell activation syndrome [Not Recovered/Not Resolved]
  - Flatulence [Unknown]
  - Blood pressure increased [Unknown]
  - Metabolic disorder [Unknown]
  - Heart rate increased [Unknown]

NARRATIVE: CASE EVENT DATE: 20200504
